FAERS Safety Report 8344592-9 (Version None)
Quarter: 2012Q2

REPORT INFORMATION
  Report Type: 
  Country: None (occurrence: None)
  Receive Date: 20120508
  Receipt Date: 20120423
  Transmission Date: 20120825
  Serious: Yes (Other)
  Sender: FDA-Public Use
  Company Number: BR-ROCHE-1066346

PATIENT
  Age: 46 Year
  Sex: Male

DRUGS (6)
  1. LAMIVUDINE [Concomitant]
     Indication: HIV INFECTION
     Route: 065
  2. RITONAVIR [Concomitant]
     Indication: HIV INFECTION
     Route: 065
  3. DARUNAVIR HYDRATE [Concomitant]
     Indication: HIV INFECTION
     Route: 065
  4. RALTEGRAVIR [Concomitant]
     Indication: HIV INFECTION
     Route: 065
  5. FUZEON [Suspect]
     Indication: HIV INFECTION
     Route: 058
  6. ABACAVIR [Concomitant]
     Indication: HIV INFECTION
     Route: 065

REACTIONS (2)
  - DEPENDENCE [None]
  - ABNORMAL BEHAVIOUR [None]
